FAERS Safety Report 6587908-6 (Version None)
Quarter: 2010Q1

REPORT INFORMATION
  Report Type: 
  Country: None (occurrence: None)
  Receive Date: 20100218
  Receipt Date: 20100211
  Transmission Date: 20100710
  Serious: Yes (Death, Congenital Anomaly)
  Sender: FDA-Public Use
  Company Number: TR-ABBOTT-10P-161-0625697-00

PATIENT
  Age: 1 Day
  Sex: Female
  Weight: 2.6 kg

DRUGS (2)
  1. VALPROIC ACID [Suspect]
     Indication: DRUG EXPOSURE DURING PREGNANCY
     Route: 064
  2. CARBAMAZEPINE [Suspect]
     Indication: DRUG EXPOSURE DURING PREGNANCY
     Route: 064

REACTIONS (18)
  - APLASIA CUTIS CONGENITA [None]
  - ATRIAL SEPTAL DEFECT [None]
  - CARDIAC MURMUR [None]
  - CLINODACTYLY [None]
  - COARCTATION OF THE AORTA [None]
  - CONGENITAL CARDIOVASCULAR ANOMALY [None]
  - CONGENITAL EYELID MALFORMATION [None]
  - DRUG EXPOSURE DURING PREGNANCY [None]
  - FEMORAL PULSE DECREASED [None]
  - FOETAL ANTICONVULSANT SYNDROME [None]
  - HEPATOMEGALY [None]
  - HYPOPLASTIC LEFT HEART SYNDROME [None]
  - IRIS COLOBOMA [None]
  - METABOLIC ACIDOSIS [None]
  - MICROGNATHIA [None]
  - PATENT DUCTUS ARTERIOSUS [None]
  - RESPIRATORY DISTRESS [None]
  - VENTRICULAR SEPTAL DEFECT [None]
